FAERS Safety Report 25934099 (Version 1)
Quarter: 2025Q4

REPORT INFORMATION
  Report Type: Report from Study
  Country: US (occurrence: US)
  Receive Date: 20251017
  Receipt Date: 20251017
  Transmission Date: 20260117
  Serious: Yes (Hospitalization, Other)
  Sender: GILEAD
  Company Number: US-GILEAD-2025-0732610

PATIENT
  Sex: Male

DRUGS (1)
  1. AZTREONAM LYSINE [Suspect]
     Active Substance: AZTREONAM LYSINE
     Indication: Cystic fibrosis
     Dosage: INHALE THE CONTENTS OF 1 VIAL THREE TIMES DAILY VIA NEBULIZER FOR 28 DAYS ON, 28 DAYS OFF
     Route: 055
     Dates: start: 20231006

REACTIONS (1)
  - Infective exacerbation of bronchiectasis [Recovered/Resolved]
